FAERS Safety Report 7338147-2 (Version None)
Quarter: 2011Q1

REPORT INFORMATION
  Report Type: 
  Country: None (occurrence: None)
  Receive Date: 20110308
  Receipt Date: 20110223
  Transmission Date: 20110831
  Serious: Yes (Hospitalization, Other)
  Sender: FDA-Public Use
  Company Number: FR-ELI_LILLY_AND_COMPANY-FR201103000410

PATIENT
  Sex: Female

DRUGS (10)
  1. CYMBALTA [Suspect]
     Indication: DEPRESSION
     Dosage: 30 MG, DAILY (1/D)
     Route: 048
     Dates: end: 20080911
  2. FUROSEMIDE [Concomitant]
     Dosage: 600 MG, DAILY (1/D)
     Route: 048
  3. KALEORID [Concomitant]
     Indication: HYPOKALAEMIA
     Dosage: 600 MG, DAILY (1/D)
     Route: 048
  4. HEMIGOXINE [Concomitant]
     Indication: ATRIAL FIBRILLATION
     Dosage: 0.125 MG, DAILY (1/D)
     Route: 048
  5. DIANTALVIC [Concomitant]
     Indication: PAIN
     Dosage: 2 D/F, 3/D
     Route: 048
     Dates: start: 20080901, end: 20080903
  6. ACETAMINOPHEN [Concomitant]
     Indication: PAIN
     Dates: start: 20080916
  7. MINISINTROM [Concomitant]
     Indication: ATRIAL FIBRILLATION
     Dosage: 1 MG, DAILY (1/D)
     Route: 048
     Dates: end: 20080903
  8. VOLTAREN [Concomitant]
     Route: 061
  9. ACTISKENAN [Concomitant]
     Indication: PAIN
     Dosage: 5 MG, UNK
     Dates: start: 20080916
  10. MINISINTROM [Concomitant]
     Dosage: 1 MG, DAILY (1/D)
     Dates: start: 20080908

REACTIONS (9)
  - PELVIC FRACTURE [None]
  - INTRA-ABDOMINAL HAEMATOMA [None]
  - RENAL FAILURE [None]
  - ABDOMINAL WALL HAEMATOMA [None]
  - ECCHYMOSIS [None]
  - ANAEMIA [None]
  - URINARY TRACT INFECTION [None]
  - FALL [None]
  - RETROPERITONEAL HAEMATOMA [None]
